FAERS Safety Report 5155710-8 (Version None)
Quarter: 2006Q4

REPORT INFORMATION
  Report Type: 
  Country: None (occurrence: None)
  Receive Date: 20061114
  Receipt Date: 20061004
  Transmission Date: 20070319
  Serious: Yes (Death, Other)
  Sender: FDA-Public Use
  Company Number: 2005142489

PATIENT
  Age: 53 Year
  Sex: Male
  Weight: 84.369 kg

DRUGS (1)
  1. BEXTRA [Suspect]
     Indication: ARTHRALGIA
     Dosage: 20 MG (20 MG, 1 IN 1 CYCLICAL)
     Dates: start: 20040427

REACTIONS (2)
  - INJURY [None]
  - MYOCARDIAL INFARCTION [None]
